FAERS Safety Report 8487363-5 (Version None)
Quarter: 2012Q2

REPORT INFORMATION
  Report Type: 
  Country: None (occurrence: None)
  Receive Date: 20120628
  Receipt Date: 20120628
  Transmission Date: 20120825
  Serious: Yes (Disabling, Other)
  Sender: FDA-Public Use
  Company Number: None

PATIENT
  Sex: Male

DRUGS (4)
  1. METFORMIN HCL [Concomitant]
  2. SIMVASTATIN [Suspect]
     Indication: HYPERTENSION
     Dosage: 10MG ONCE A DAY PO
     Route: 048
  3. CHLORTHALIDONE [Suspect]
     Indication: HYPERTENSION
     Dosage: 12.5MG ONCE A DAY PO
     Route: 048
  4. GLYPOCIDE [Concomitant]

REACTIONS (2)
  - TYPE 2 DIABETES MELLITUS [None]
  - BLOOD CREATININE INCREASED [None]
